FAERS Safety Report 5664693-3 (Version None)
Quarter: 2008Q1

REPORT INFORMATION
  Report Type: 
  Country: None (occurrence: None)
  Receive Date: 20080314
  Receipt Date: 20080303
  Transmission Date: 20080703
  Serious: Yes (Hospitalization, Other)
  Sender: FDA-Public Use
  Company Number: US-KINGPHARMUSA00001-K200800269

PATIENT

DRUGS (14)
  1. SEPTRA [Suspect]
     Indication: CITROBACTER INFECTION
     Dosage: 160/800 MG, BID
     Dates: start: 20070702, end: 20070706
  2. MEMANTINE HCL [Interacting]
     Indication: DEMENTIA ALZHEIMER'S TYPE
     Dosage: 10 MG, BID
     Dates: start: 20060701
  3. MEMANTINE HCL [Interacting]
     Dosage: 5 MG, EACH MORNING
  4. MEMANTINE HCL [Interacting]
     Dosage: 10 MG EACH NIGHT
  5. TRIMETHOPRIM [Interacting]
     Indication: PROPHYLAXIS URINARY TRACT INFECTION
     Dosage: 100 MG, QD
     Dates: start: 20070701, end: 20071001
  6. DONEPEZIL HCL [Concomitant]
     Indication: DEMENTIA ALZHEIMER'S TYPE
     Dosage: 5 MG, QD
     Dates: start: 20030201, end: 20030901
  7. DONEPEZIL HCL [Concomitant]
     Dosage: 10 MG, QD
     Dates: start: 20030901, end: 20071001
  8. PAROXETINE HCL [Concomitant]
     Dosage: 20 MG, QD
     Dates: start: 20020101, end: 20071001
  9. PAROXETINE HCL [Concomitant]
     Dosage: 10 MG, QD
     Dates: start: 20071001
  10. LISINOPRIL/HYDROCHLOORTHIAZIDE STADA [Concomitant]
     Dosage: 1/2 TABLET, QD
     Dates: start: 20030101, end: 20071001
  11. ATORVASTATIN CALCIUM [Concomitant]
     Dosage: 10 MG, QD
     Dates: start: 20030101, end: 20071001
  12. FAMOTIDINE [Concomitant]
     Indication: GASTROOESOPHAGEAL REFLUX DISEASE
     Dosage: 40 MG, QD
     Dates: start: 20070101, end: 20071001
  13. LEVODOPA COMP. C [Concomitant]
     Indication: RESTLESS LEGS SYNDROME
     Dosage: 250/100 MG, QHS
     Dates: start: 20070901, end: 20071001
  14. OLANZAPINE [Concomitant]
     Indication: DELIRIUM
     Dosage: 2.5 MG, UNK
     Dates: start: 20071001, end: 20071001

REACTIONS (6)
  - AGITATION [None]
  - CONFUSIONAL STATE [None]
  - DELIRIUM [None]
  - DRUG INTERACTION [None]
  - MUSCLE TWITCHING [None]
  - MYOCLONUS [None]
